FAERS Safety Report 21458194 (Version 1)
Quarter: 2022Q4

REPORT INFORMATION
  Report Type: Spontaneous
  Country: US (occurrence: US)
  Receive Date: 20221014
  Receipt Date: 20221014
  Transmission Date: 20230113
  Serious: Yes (Death, Life-Threatening, Other)
  Sender: FDA-Public Use
  Company Number: US-drreddys-LIT/USA/22/0155773

PATIENT
  Age: 5 Year
  Sex: Male

DRUGS (4)
  1. CLOFARABINE [Suspect]
     Active Substance: CLOFARABINE
     Indication: Acute myeloid leukaemia recurrent
     Dosage: 1 CYCLE OF IV CLOFARABINE 52 MG/M2/DOSE DAILY FOR 5 DOSES
     Route: 042
  2. CALCITRIOL [Suspect]
     Active Substance: CALCITRIOL
     Indication: Acute myeloid leukaemia recurrent
     Dosage: CALCITRIOL 0.02 MCG/KG/DAY DIVIDED TWICE A DAY
     Route: 048
  3. CYTARABINE [Suspect]
     Active Substance: CYTARABINE
     Indication: Acute myeloid leukaemia recurrent
  4. CYTARABINE [Suspect]
     Active Substance: CYTARABINE
     Dosage: 1 CYCLE OF IV CYTARABINE 1000 MG/M2/DOSE DAILY FOR 5 DOSES
     Route: 042

REACTIONS (3)
  - Death [Fatal]
  - Drug ineffective [Unknown]
  - Acute myeloid leukaemia refractory [Unknown]
